FAERS Safety Report 6643325-1 (Version None)
Quarter: 2010Q1

REPORT INFORMATION
  Report Type: 
  Country: None (occurrence: None)
  Receive Date: 20100304
  Receipt Date: 20090904
  Transmission Date: 20100710
  Serious: Yes (Hospitalization)
  Sender: FDA-Public Use
  Company Number: US-003389

PATIENT
  Age: 35 Year
  Sex: Female

DRUGS (9)
  1. ISOVUE-300 [Suspect]
     Indication: COMPUTERISED TOMOGRAM
     Dosage: 100ML ONCE INTRAVENOUS (NOT OTHERWISE SPECIFIED)
     Route: 042
     Dates: start: 20090830, end: 20090830
  2. ISOVUE-300 [Suspect]
     Indication: PYELONEPHRITIS
     Dosage: 100ML ONCE INTRAVENOUS (NOT OTHERWISE SPECIFIED)
     Route: 042
     Dates: start: 20090830, end: 20090830
  3. ISOVUE-300 [Suspect]
     Indication: URINARY TRACT INFECTION
     Dosage: 100ML ONCE INTRAVENOUS (NOT OTHERWISE SPECIFIED)
     Route: 042
     Dates: start: 20090830, end: 20090830
  4. AMITRIPTYLINE HYDROCHLORIDE [Concomitant]
  5. SINGULAIR [Concomitant]
  6. LORAZEPAM [Concomitant]
  7. CYMBALTA [Concomitant]
  8. GABAPENTIN [Concomitant]
  9. AMANTADINE HCL [Concomitant]

REACTIONS (1)
  - ANAPHYLACTOID REACTION [None]
